FAERS Safety Report 8592309-5 (Version None)
Quarter: 2012Q3

REPORT INFORMATION
  Report Type: 
  Country: None (occurrence: None)
  Receive Date: 20120814
  Receipt Date: 20120806
  Transmission Date: 20120928
  Serious: Yes (Other)
  Sender: FDA-Public Use
  Company Number: KR-BAYER-2012-065103

PATIENT
  Age: 62 Year
  Sex: Male
  Weight: 68 kg

DRUGS (3)
  1. NEXAVAR [Suspect]
     Indication: HEPATIC NEOPLASM MALIGNANT
  2. METFORMIN HCL [Concomitant]
     Indication: DIABETES MELLITUS
     Dosage: DAILY DOSE: 1500MG
     Dates: start: 20070101
  3. ENTECAVIR [Concomitant]
     Indication: HEPATITIS B
     Dosage: DAILY DOSE: 0.5MG
     Dates: start: 20091001

REACTIONS (1)
  - HEPATIC FAILURE [None]
